FAERS Safety Report 10265064 (Version 1)
Quarter: 2014Q2

REPORT INFORMATION
  Report Type: Spontaneous
  Country: NZ (occurrence: NZ)
  Receive Date: 20140627
  Receipt Date: 20140627
  Transmission Date: 20141212
  Serious: Yes (Hospitalization)
  Sender: FDA-Public Use
  Company Number: NZ-JNJFOC-20140614909

PATIENT
  Age: 80 Year
  Sex: Male
  Weight: 63 kg

DRUGS (11)
  1. XARELTO [Suspect]
     Indication: PRODUCT USED FOR UNKNOWN INDICATION
     Route: 048
     Dates: end: 20140605
  2. IBRUTINIB [Concomitant]
     Indication: CHRONIC LYMPHOCYTIC LEUKAEMIA
     Route: 048
     Dates: start: 20140516
  3. PARACETAMOL [Concomitant]
     Route: 048
  4. SIMVASTATIN [Concomitant]
     Dosage: Q PM
     Route: 048
  5. APO-FOLIC [Concomitant]
     Route: 048
  6. APO-ALLOPURINOL [Concomitant]
     Route: 048
  7. CARDIZEM CD [Concomitant]
     Route: 048
  8. HABITROL [Concomitant]
     Dosage: Q1MON
     Route: 062
  9. FINASTERIDE [Concomitant]
     Route: 048
  10. NORMISON [Concomitant]
     Route: 048
  11. OMEZOL [Concomitant]
     Route: 048

REACTIONS (4)
  - Haemoptysis [Recovered/Resolved]
  - Anaemia [Unknown]
  - Pain [Unknown]
  - Asthenia [Unknown]
